FAERS Safety Report 10029828 (Version 2)
Quarter: 2014Q1

REPORT INFORMATION
  Report Type: Spontaneous
  Country: US (occurrence: None)
  Receive Date: 20140320
  Receipt Date: 20140327
  Transmission Date: 20141002
  Serious: Yes (Other)
  Sender: FDA-Public Use
  Company Number: 2014-US-001252

PATIENT
  Age: 40 Year
  Sex: Female

DRUGS (1)
  1. XYREM [Suspect]
     Indication: NARCOLEPSY
     Route: 048
     Dates: start: 200604, end: 2006

REACTIONS (17)
  - Activities of daily living impaired [None]
  - Communication disorder [None]
  - Feeling abnormal [None]
  - Feeling abnormal [None]
  - Mental impairment [None]
  - Sleep disorder [None]
  - Fluid intake reduced [None]
  - Self injurious behaviour [None]
  - Feeling abnormal [None]
  - Disorientation [None]
  - Hypophagia [None]
  - Incontinence [None]
  - Sluggishness [None]
  - Stress [None]
  - Nausea [None]
  - Fatigue [None]
  - Headache [None]
